FAERS Safety Report 26088433 (Version 3)
Quarter: 2025Q4

REPORT INFORMATION
  Report Type: Report from Study
  Country: IN (occurrence: IN)
  Receive Date: 20251125
  Receipt Date: 20251226
  Transmission Date: 20260117
  Serious: No
  Sender: JOHNSON AND JOHNSON
  Company Number: IN-JNJFOC-20251154885

PATIENT
  Age: 54 Year
  Sex: Female

DRUGS (1)
  1. SIMPONI [Suspect]
     Active Substance: GOLIMUMAB
     Indication: Product used for unknown indication
     Dosage: STRENGTH: 50.00 MG / 0.50 ML
     Route: 058
     Dates: start: 20251001

REACTIONS (2)
  - Product dose omission issue [Unknown]
  - Device issue [Unknown]

NARRATIVE: CASE EVENT DATE: 20251111
